FAERS Safety Report 14993883 (Version 1)
Quarter: 2018Q2

REPORT INFORMATION
  Report Type: Spontaneous
  Country: HR (occurrence: HR)
  Receive Date: 20180611
  Receipt Date: 20180611
  Transmission Date: 20180711
  Serious: Yes (Other)
  Sender: FDA-Public Use
  Company Number: HR-TEVA-2018-HR-905734

PATIENT
  Age: 9 Year
  Sex: Male
  Weight: 31 kg

DRUGS (3)
  1. IBUPROFEN BELUPO [Concomitant]
     Indication: PYREXIA
     Dosage: LIQUIDS, SUSPENSIONS
     Route: 048
     Dates: start: 20180309
  2. EFEDRIN [Concomitant]
     Active Substance: EPHEDRINE
     Indication: NASAL CONGESTION
     Dosage: 6 GTT DAILY; DROPS
     Route: 045
     Dates: start: 20180309
  3. KLAVOCIN BID SIRUP [Suspect]
     Active Substance: AMOXICILLIN\CLAVULANIC ACID
     Indication: URTICARIA
     Dosage: 14.8 ML DAILY; LIQUIDS, DRY SUSPENSIONS/DROPS
     Route: 048
     Dates: start: 20180312, end: 20180313

REACTIONS (1)
  - Mouth swelling [Recovering/Resolving]

NARRATIVE: CASE EVENT DATE: 20180312
